FAERS Safety Report 13458965 (Version 2)
Quarter: 2017Q2

REPORT INFORMATION
  Report Type: Spontaneous
  Country: CA (occurrence: CA)
  Receive Date: 20170419
  Receipt Date: 20170421
  Transmission Date: 20170830
  Serious: Yes (Life-Threatening, Hospitalization, Other)
  Sender: FDA-Public Use
  Company Number: CA-TEVA-760273ACC

PATIENT
  Age: 55 Year
  Sex: Female

DRUGS (7)
  1. VITAMIN B12 [Concomitant]
     Active Substance: CYANOCOBALAMIN
     Dosage: 1300 MICROGRAM DAILY;
  2. TEVA CLINDAMYCIN [Suspect]
     Active Substance: CLINDAMYCIN
     Indication: TOOTH REPAIR
     Dosage: 1200 MILLIGRAM DAILY; STRENGTH: 300MG
     Route: 048
     Dates: start: 20170324, end: 20170331
  3. TEVA AMOXICILLIN [Suspect]
     Active Substance: AMOXICILLIN
     Indication: SWELLING
  4. VITAMIN D [Concomitant]
     Active Substance: CHOLECALCIFEROL
     Dosage: 2 DOSAGE FORMS DAILY; STRENGTH: 1000 INTERNATIONAL UNITS
  5. TYLENOL [Concomitant]
     Active Substance: ACETAMINOPHEN
  6. TEVA AMOXICILLIN [Suspect]
     Active Substance: AMOXICILLIN
     Indication: TOOTH REPAIR
     Dosage: 1500 MILLIGRAM DAILY; STRENGTH: 500MG
     Route: 048
     Dates: start: 20170319, end: 20170324
  7. TEVA CLINDAMYCIN [Suspect]
     Active Substance: CLINDAMYCIN
     Indication: SWELLING

REACTIONS (9)
  - Stevens-Johnson syndrome [Unknown]
  - Disturbance in attention [Unknown]
  - Fatigue [Not Recovered/Not Resolved]
  - Drug ineffective [Unknown]
  - Asthenia [Unknown]
  - Rash [Unknown]
  - Asthenia [Not Recovered/Not Resolved]
  - Pyrexia [Recovered/Resolved]
  - Skin exfoliation [Not Recovered/Not Resolved]

NARRATIVE: CASE EVENT DATE: 2017
